FAERS Safety Report 10404636 (Version 1)
Quarter: 2014Q2

REPORT INFORMATION
  Report Type: Spontaneous
  Country: US (occurrence: None)
  Receive Date: 20140530
  Receipt Date: 20140530
  Transmission Date: 20141212
  Serious: No
  Sender: FDA-Public Use
  Company Number: 398234

PATIENT
  Age: 71 Year
  Sex: Female

DRUGS (2)
  1. ACTIVELLA [Suspect]
     Indication: BONE DISORDER
     Route: 048
  2. ACTIVELLA [Suspect]
     Indication: OFF LABEL USE
     Route: 048

REACTIONS (5)
  - Off label use [None]
  - Back pain [None]
  - Vaginal haemorrhage [None]
  - Rash macular [None]
  - Abdominal distension [None]
